FAERS Safety Report 8825408 (Version 12)
Quarter: 2013Q4

REPORT INFORMATION
  Report Type: Spontaneous
  Country: US (occurrence: US)
  Receive Date: 20121004
  Receipt Date: 20131105
  Transmission Date: 20140711
  Serious: Yes (Life-Threatening, Hospitalization, Congenital Anomaly)
  Sender: FDA-Public Use
  Company Number: US-JNJFOC-20111107905

PATIENT
  Age: 0 Day
  Sex: Male

DRUGS (15)
  1. TOPAMAX [Suspect]
     Indication: FOETAL EXPOSURE DURING PREGNANCY
     Route: 064
     Dates: end: 201011
  2. FLEXERIL [Suspect]
     Indication: FOETAL EXPOSURE DURING PREGNANCY
     Route: 064
  3. CETIRIZINE HCL [Suspect]
     Route: 064
  4. CETIRIZINE HCL [Suspect]
     Indication: FOETAL EXPOSURE DURING PREGNANCY
     Route: 064
  5. GUAIFENESIN / CODEINE [Suspect]
     Indication: FOETAL EXPOSURE DURING PREGNANCY
     Route: 064
  6. PRENATAL VITAMINS [Suspect]
     Indication: FOETAL EXPOSURE DURING PREGNANCY
     Route: 064
  7. NITROFURANTOIN [Suspect]
     Indication: FOETAL EXPOSURE DURING PREGNANCY
     Route: 064
  8. SUMATRIPTAN SUCCINATE [Suspect]
     Indication: FOETAL EXPOSURE DURING PREGNANCY
     Route: 064
  9. OLOPATADINE HYDROCHLORIDE [Suspect]
     Indication: FOETAL EXPOSURE DURING PREGNANCY
     Route: 064
  10. AZITHROMYCIN [Suspect]
     Indication: FOETAL EXPOSURE DURING PREGNANCY
     Route: 064
  11. FLUTICASONE PROPIONATE [Suspect]
     Indication: FOETAL EXPOSURE DURING PREGNANCY
     Route: 064
  12. HYDROCODONE - ACETAMINOPHEN [Suspect]
     Indication: FOETAL EXPOSURE DURING PREGNANCY
     Route: 064
  13. AMOXYCILLIN [Suspect]
     Indication: FOETAL EXPOSURE DURING PREGNANCY
     Route: 064
  14. NAPROXEN [Suspect]
     Indication: FOETAL EXPOSURE DURING PREGNANCY
     Route: 064
  15. IBUPROFEN [Suspect]
     Indication: FOETAL EXPOSURE DURING PREGNANCY
     Route: 064

REACTIONS (21)
  - Dysmorphism [Unknown]
  - Developmental delay [Recovering/Resolving]
  - Craniosynostosis [Unknown]
  - Hyperbilirubinaemia [Unknown]
  - Pierre Robin syndrome [Recovering/Resolving]
  - Deafness [Unknown]
  - Glaucoma [Recovered/Resolved]
  - Respiratory disorder [Recovering/Resolving]
  - Cleft palate [Unknown]
  - Pneumonia aspiration [Unknown]
  - Bronchial hyperreactivity [Unknown]
  - Torticollis [Recovered/Resolved]
  - Exophthalmos [Unknown]
  - Brachycephaly [Unknown]
  - Stickler^s syndrome [Unknown]
  - Craniofacial dysostosis [Unknown]
  - Mandibulofacial dysostosis [Unknown]
  - Multiple congenital abnormalities [Unknown]
  - Depression [Unknown]
  - Gastrooesophageal reflux disease [Recovering/Resolving]
  - Anxiety [Unknown]
